FAERS Safety Report 18170153 (Version 2)
Quarter: 2020Q3

REPORT INFORMATION
  Report Type: Spontaneous
  Country: US (occurrence: US)
  Receive Date: 20200819
  Receipt Date: 20200902
  Transmission Date: 20201103
  Serious: No
  Sender: FDA-Public Use
  Company Number: US-BEH-2020121408

PATIENT
  Age: 72 Year
  Sex: Female
  Weight: 91.16 kg

DRUGS (12)
  1. HIZENTRA [Suspect]
     Active Substance: HUMAN IMMUNOGLOBULIN G
     Indication: IMMUNODEFICIENCY COMMON VARIABLE
     Dosage: 20 GRAM, QOW
     Route: 058
     Dates: start: 20161102
  2. HIZENTRA [Suspect]
     Active Substance: HUMAN IMMUNOGLOBULIN G
     Dosage: 6 GRAM, QOW
     Route: 058
     Dates: start: 20161102
  3. HIZENTRA [Suspect]
     Active Substance: HUMAN IMMUNOGLOBULIN G
     Dosage: UNK, TOT
     Route: 058
     Dates: start: 20200809, end: 20200809
  4. HIZENTRA [Suspect]
     Active Substance: HUMAN IMMUNOGLOBULIN G
     Dosage: 26 GRAM, QOW
     Route: 058
  5. COENZYME Q10 [Concomitant]
     Active Substance: DIETARY SUPPLEMENT\UBIDECARENONE
     Dosage: 1 CAP, QD
     Dates: start: 2020
  6. METHYLCOBALAMINE [Concomitant]
     Active Substance: METHYLCOBALAMIN
     Dosage: 250 MICROGRAM, QD AM
     Dates: start: 2020
  7. VITAMIN C [Concomitant]
     Active Substance: ASCORBIC ACID
     Dosage: 250 MILLIGRAM, QD
     Dates: start: 2020
  8. XOPENEX [Concomitant]
     Active Substance: LEVALBUTEROL HYDROCHLORIDE
     Dosage: 2 PUFFS Q4MS, PRN
     Dates: start: 2020
  9. FOSAMAX [Concomitant]
     Active Substance: ALENDRONATE SODIUM
     Dosage: 1 TABLET, QD
     Dates: start: 2020
  10. TRIAMTERENE AND HYDROCHLOROTHIZIDE [Concomitant]
     Active Substance: HYDROCHLOROTHIAZIDE\TRIAMTERENE
     Dosage: 37.5 ? 25 MILLIGRAN, QD
     Route: 048
     Dates: start: 2020
  11. TIROSINT [Concomitant]
     Active Substance: LEVOTHYROXINE SODIUM
     Dosage: 50 MICROGRAM, QD
     Dates: start: 2020
  12. ASPERCREME [LIDOCAINE] [Concomitant]
     Active Substance: LIDOCAINE
     Dosage: UNK
     Dates: start: 20200513

REACTIONS (4)
  - Injection site mass [Unknown]
  - Infusion site swelling [Unknown]
  - Nodule [Unknown]
  - Musculoskeletal stiffness [Recovered/Resolved]

NARRATIVE: CASE EVENT DATE: 202008
